FAERS Safety Report 6275101-6 (Version None)
Quarter: 2009Q3

REPORT INFORMATION
  Report Type: 
  Country: None (occurrence: None)
  Receive Date: 20090721
  Receipt Date: 20090707
  Transmission Date: 20100115
  Serious: Yes (Other)
  Sender: FDA-Public Use
  Company Number: PHHY2009BR28889

PATIENT
  Sex: Male
  Weight: 110 kg

DRUGS (3)
  1. CODATEN [Suspect]
     Indication: PAIN
     Dosage: 1 DF, Q8H
     Route: 048
     Dates: start: 20070101
  2. TYLEX [Concomitant]
     Indication: PAIN
  3. ULTRACET [Concomitant]
     Indication: PAIN

REACTIONS (8)
  - HYPERTENSION [None]
  - HYPOAESTHESIA [None]
  - INTERVERTEBRAL DISC OPERATION [None]
  - NERVE COMPRESSION [None]
  - NERVE ROOT LESION [None]
  - PAIN [None]
  - PAIN IN EXTREMITY [None]
  - SPINAL OPERATION [None]
